FAERS Safety Report 17508995 (Version 1)
Quarter: 2020Q1

REPORT INFORMATION
  Report Type: Spontaneous
  Country: US (occurrence: US)
  Receive Date: 20200306
  Receipt Date: 20200306
  Transmission Date: 20200409
  Serious: Yes (Hospitalization)
  Sender: FDA-Public Use
  Company Number: None

PATIENT
  Age: 34 Year
  Sex: Female
  Weight: 83.25 kg

DRUGS (4)
  1. TYLENOL [Concomitant]
     Active Substance: ACETAMINOPHEN
  2. EXPAREL [Suspect]
     Active Substance: BUPIVACAINE
     Indication: UMBILICAL HERNIA
     Dates: start: 20190903, end: 20200212
  3. OXYCODONE [Concomitant]
     Active Substance: OXYCODONE
  4. IBPROFEN [Concomitant]

REACTIONS (7)
  - Dyschezia [None]
  - Flatulence [None]
  - Hypoaesthesia [None]
  - Umbilical hernia [None]
  - Dysuria [None]
  - Pain [None]
  - Inadequate analgesia [None]

NARRATIVE: CASE EVENT DATE: 20190903
